FAERS Safety Report 10969128 (Version 2)
Quarter: 2015Q2

REPORT INFORMATION
  Report Type: Spontaneous
  Country: JP (occurrence: JP)
  Receive Date: 20150331
  Receipt Date: 20150408
  Transmission Date: 20150821
  Serious: Yes (Death)
  Sender: FDA-Public Use
  Company Number: JP-AMGEN-JPNSP2015030100

PATIENT
  Age: 75 Year
  Sex: Male
  Weight: 62 kg

DRUGS (19)
  1. SOLITA-T3 [Concomitant]
     Active Substance: POTASSIUM CHLORIDE\SODIUM CHLORIDE\SODIUM LACTATE
     Dosage: 500 ML, UNK
     Route: 042
     Dates: start: 20150304, end: 20150308
  2. RANDA [Suspect]
     Active Substance: CISPLATIN
     Dosage: 142 MG, SINGLE
     Route: 042
     Dates: start: 20150304, end: 20150304
  3. SOLYUGEN F [Concomitant]
     Dosage: 500 ML, UNK
     Route: 042
     Dates: start: 20150304, end: 20150308
  4. ALOXI [Concomitant]
     Active Substance: PALONOSETRON HYDROCHLORIDE
     Dosage: 0.75 MG, UNK
     Route: 042
     Dates: start: 20150304, end: 20150304
  5. D-MANNITOL [Concomitant]
     Active Substance: MANNITOL
     Dosage: 300 ML, UNK
     Route: 042
     Dates: start: 20150304, end: 20150304
  6. LASIX [Concomitant]
     Active Substance: FUROSEMIDE
     Dosage: 10 MG, UNK
     Route: 042
     Dates: start: 20150305, end: 20150305
  7. MAGNESIUM SALT [Concomitant]
     Dosage: 8 ML, UNK
     Route: 042
     Dates: start: 20150304, end: 20150304
  8. ASPARA POTASSIUM [Concomitant]
     Active Substance: POTASSIUM ASPARTATE
     Dosage: 10 MEQ, UNK
     Route: 042
     Dates: start: 20150304, end: 20150304
  9. NAVELBINE [Suspect]
     Active Substance: VINORELBINE TARTRATE
     Dosage: 44 MG, 1X/WEEK
     Route: 042
     Dates: start: 20150304, end: 20150311
  10. DECADRON                           /00016002/ [Concomitant]
     Active Substance: DEXAMETHASONE
     Dosage: 6.6 MG, UNK
     Route: 042
     Dates: start: 20150305, end: 20150307
  11. G-LASTA [Suspect]
     Active Substance: PEGFILGRASTIM
     Indication: PRODUCT USED FOR UNKNOWN INDICATION
     Dosage: 3.6 MG, SINGLE
     Route: 058
     Dates: start: 20150312, end: 20150312
  12. NAVELBINE [Suspect]
     Active Substance: VINORELBINE TARTRATE
     Indication: LUNG NEOPLASM MALIGNANT
     Dosage: UNK
     Route: 042
     Dates: start: 20150121
  13. RANDA [Suspect]
     Active Substance: CISPLATIN
     Indication: LUNG NEOPLASM MALIGNANT
     Dosage: UNK
     Route: 042
     Dates: start: 20150121
  14. DECADRON                           /00016002/ [Concomitant]
     Active Substance: DEXAMETHASONE
     Dosage: 13.2 MG, UNK
     Route: 042
     Dates: start: 20150304, end: 20150304
  15. LACTEC                             /00490001/ [Concomitant]
     Dosage: 500 ML, UNK
     Route: 042
     Dates: start: 20150304, end: 20150308
  16. ISOTONIC SODIUM CHLORIDE SOLUTION [Concomitant]
     Active Substance: SODIUM CHLORIDE
     Dosage: 1420 ML, UNK
     Route: 042
     Dates: start: 20150304, end: 20150304
  17. ISOTONIC SODIUM CHLORIDE SOLUTION [Concomitant]
     Active Substance: SODIUM CHLORIDE
     Dosage: 100 ML, UNK
     Route: 042
     Dates: start: 20150305, end: 20150307
  18. ISOTONIC SODIUM CHLORIDE SOLUTION [Concomitant]
     Active Substance: SODIUM CHLORIDE
     Dosage: 250 ML, UNK
     Route: 042
     Dates: start: 20150311, end: 20150311
  19. SOLYUGEN F [Concomitant]
     Dosage: 500 ML, UNK
     Route: 042
     Dates: start: 20150315, end: 20150315

REACTIONS (1)
  - Febrile neutropenia [Fatal]

NARRATIVE: CASE EVENT DATE: 20150315
